FAERS Safety Report 4962506-6 (Version None)
Quarter: 2006Q1

REPORT INFORMATION
  Report Type: 
  Country: None (occurrence: None)
  Receive Date: 20060127
  Receipt Date: 20050310
  Transmission Date: 20060701
  Serious: Yes (Other)
  Sender: FDA-Public Use
  Company Number: 05-03-0383

PATIENT
  Age: 12 Year
  Sex: Female
  Weight: 67.1324 kg

DRUGS (4)
  1. CLOZAPINE [Suspect]
     Indication: BIPOLAR DISORDER
     Dosage: 25MG QD, ORAL
     Route: 048
     Dates: start: 20050204, end: 20050311
  2. LAMICTAL [Concomitant]
  3. SEROQUEL [Concomitant]
  4. STRATTERA [Concomitant]

REACTIONS (1)
  - NEUTROPENIA [None]
